FAERS Safety Report 21646501 (Version 1)
Quarter: 2022Q4

REPORT INFORMATION
  Report Type: Spontaneous
  Country: US (occurrence: US)
  Receive Date: 20221126
  Receipt Date: 20221126
  Transmission Date: 20230113
  Serious: No
  Sender: FDA-Public Use
  Company Number: US-ELI_LILLY_AND_COMPANY-US202211013110

PATIENT
  Sex: Male

DRUGS (1)
  1. FORTEO [Suspect]
     Active Substance: TERIPARATIDE
     Indication: Product used for unknown indication
     Dosage: 250 UG, UNKNOWN
     Route: 058

REACTIONS (4)
  - Dandruff [Not Recovered/Not Resolved]
  - Fatigue [Unknown]
  - Bone pain [Unknown]
  - Muscular weakness [Unknown]
